FAERS Safety Report 18509188 (Version 1)
Quarter: 2020Q4

REPORT INFORMATION
  Report Type: Spontaneous
  Country: CA (occurrence: CA)
  Receive Date: 20201117
  Receipt Date: 20201117
  Transmission Date: 20210114
  Serious: Yes (Hospitalization)
  Sender: FDA-Public Use
  Company Number: CA-JNJFOC-20201118310

PATIENT
  Age: 64 Year
  Sex: Male
  Weight: 61 kg

DRUGS (2)
  1. INFLIXIMAB, RECOMBINANT [Suspect]
     Active Substance: INFLIXIMAB
     Indication: CROHN^S DISEASE
     Route: 042
  2. AZATHIOPRINE. [Concomitant]
     Active Substance: AZATHIOPRINE

REACTIONS (3)
  - Pneumonia [Unknown]
  - Off label use [Unknown]
  - Malaise [Unknown]
